FAERS Safety Report 5583668-6 (Version None)
Quarter: 2008Q1

REPORT INFORMATION
  Report Type: 
  Country: None (occurrence: None)
  Receive Date: 20080102
  Receipt Date: 20071217
  Transmission Date: 20080703
  Serious: Yes (Death)
  Sender: FDA-Public Use
  Company Number: 170

PATIENT
  Sex: Male

DRUGS (1)
  1. FAZACLO ODT [Suspect]
     Dosage: 300 MG PO DAILY
     Route: 048
     Dates: start: 20050711, end: 20071120

REACTIONS (1)
  - DEATH [None]
